FAERS Safety Report 5159249-5 (Version None)
Quarter: 2006Q4

REPORT INFORMATION
  Report Type: 
  Country: None (occurrence: None)
  Receive Date: 20061120
  Receipt Date: 20061102
  Transmission Date: 20070319
  Serious: Yes (Life-Threatening)
  Sender: FDA-Public Use
  Company Number: 232439

PATIENT
  Age: 28 Year
  Sex: Male

DRUGS (8)
  1. AVASTIN [Suspect]
     Indication: COLORECTAL CANCER
     Dosage: 415 MG, Q2W, INTRAVENOUS
     Route: 042
     Dates: start: 20050312, end: 20050926
  2. KETONAL (KETOPROFEN) [Concomitant]
  3. DICLOFENAC SODIUM [Concomitant]
  4. MEGESTROL (MEGESTROL ACETATE) [Concomitant]
  5. VENLAFAXINE HCL [Concomitant]
  6. LACTULOSE [Concomitant]
  7. METOCLOPRAMIDE (METOCLOPRAMIDE HYDROCHLORIDE) [Concomitant]
  8. ONDANSETRON [Concomitant]

REACTIONS (1)
  - ANAEMIA [None]
